FAERS Safety Report 5650355-5 (Version None)
Quarter: 2008Q1

REPORT INFORMATION
  Report Type: 
  Country: None (occurrence: None)
  Receive Date: 20080304
  Receipt Date: 20080304
  Transmission Date: 20080703
  Serious: Yes (Other)
  Sender: FDA-Public Use
  Company Number: None

PATIENT
  Age: 45 Year
  Sex: Male
  Weight: 147.419 kg

DRUGS (2)
  1. BUPROPION 300 XL [Suspect]
     Indication: DISEASE RECURRENCE
     Dosage: 1 PO QD PO
     Route: 048
     Dates: start: 20070101, end: 20071101
  2. BUPROPION 300 XL [Suspect]
     Indication: MAJOR DEPRESSION
     Dosage: 1 PO QD PO
     Route: 048
     Dates: start: 20070101, end: 20071101

REACTIONS (4)
  - DEPRESSION [None]
  - DISEASE RECURRENCE [None]
  - PHARMACEUTICAL PRODUCT COMPLAINT [None]
  - SEASONAL AFFECTIVE DISORDER [None]
